FAERS Safety Report 10267072 (Version 1)
Quarter: 2014Q2

REPORT INFORMATION
  Report Type: Spontaneous
  Country: US (occurrence: None)
  Receive Date: 20140626
  Receipt Date: 20140626
  Transmission Date: 20141212
  Serious: Yes (Disabling, Other)
  Sender: FDA-Public Use
  Company Number: None

PATIENT
  Age: 50 Year
  Sex: Female
  Weight: 80.74 kg

DRUGS (6)
  1. SULFAMETH/TRIMETHOPRIM 800/160 TABS [Suspect]
     Indication: PYELONEPHRITIS
     Dosage: 1 TAB
     Route: 048
     Dates: end: 20140125
  2. PYRIDOSTIGMINE [Concomitant]
  3. VENLAFAXINE [Concomitant]
  4. LISINOPRIL [Concomitant]
  5. ADDERALL [Concomitant]
  6. NORCO [Concomitant]

REACTIONS (2)
  - Enterocolitis haemorrhagic [None]
  - Stevens-Johnson syndrome [None]
